FAERS Safety Report 5767956-6 (Version None)
Quarter: 2008Q2

REPORT INFORMATION
  Report Type: 
  Country: None (occurrence: None)
  Receive Date: 20080601
  Receipt Date: 20080219
  Transmission Date: 20081010
  Serious: Yes (Hospitalization)
  Sender: FDA-Public Use
  Company Number: US200802004309

PATIENT
  Age: 73 Year
  Sex: Female
  Weight: 77.1 kg

DRUGS (9)
  1. BYETTA [Suspect]
     Indication: TYPE 2 DIABETES MELLITUS
     Dosage: 5 UG, 2/D, SUBCUTANEOUS ; 10 UG, 2/D, SUBCUTANEOUS
     Route: 058
     Dates: start: 20060101, end: 20071101
  2. BYETTA [Suspect]
     Indication: TYPE 2 DIABETES MELLITUS
     Dosage: 5 UG, 2/D, SUBCUTANEOUS ; 10 UG, 2/D, SUBCUTANEOUS
     Route: 058
     Dates: start: 20071101
  3. AMARYL [Concomitant]
  4. PRECOSE [Concomitant]
  5. LIPITOR [Concomitant]
  6. ZETIA [Concomitant]
  7. LEVOXYL [Concomitant]
  8. LASIX [Concomitant]
  9. MICARDIS [Concomitant]

REACTIONS (6)
  - DEHYDRATION [None]
  - DIARRHOEA [None]
  - EARLY SATIETY [None]
  - IRRITABLE BOWEL SYNDROME [None]
  - NAUSEA [None]
  - WEIGHT DECREASED [None]
